FAERS Safety Report 14080086 (Version 1)
Quarter: 2017Q4

REPORT INFORMATION
  Report Type: Spontaneous
  Country: US (occurrence: US)
  Receive Date: 20171012
  Receipt Date: 20171012
  Transmission Date: 20180321
  Serious: No
  Sender: FDA-Public Use
  Company Number: US-MYLANLABS-2017M1028746

PATIENT
  Sex: Female

DRUGS (4)
  1. SKELAXIN [Suspect]
     Active Substance: METAXALONE
     Indication: LUMBAR SPINAL STENOSIS
     Dosage: 800 MG, BID
     Dates: start: 201610
  2. CLONAZEPAM. [Suspect]
     Active Substance: CLONAZEPAM
     Indication: PARTIAL SEIZURES
     Dosage: 2 MG, BID
     Dates: start: 2003
  3. TIZANIDINE. [Suspect]
     Active Substance: TIZANIDINE
     Indication: LUMBAR SPINAL STENOSIS
     Dosage: UNK, HS
     Dates: start: 2016
  4. LAMICTAL [Suspect]
     Active Substance: LAMOTRIGINE
     Indication: GENERALISED TONIC-CLONIC SEIZURE
     Dosage: 100 MG, BID
     Dates: start: 201610

REACTIONS (2)
  - Drug effect decreased [Unknown]
  - Somnolence [Unknown]
